FAERS Safety Report 4841181-5 (Version None)
Quarter: 2005Q4

REPORT INFORMATION
  Report Type: 
  Country: None (occurrence: None)
  Receive Date: 20051130
  Receipt Date: 20051024
  Transmission Date: 20060501
  Serious: Yes (Hospitalization)
  Sender: FDA-Public Use
  Company Number: US-BRISTOL-MYERS SQUIBB COMPANY-13156294

PATIENT
  Age: 11 Year
  Sex: Male
  Weight: 73 kg

DRUGS (3)
  1. ABILIFY [Suspect]
     Indication: BIPOLAR DISORDER
     Route: 048
     Dates: start: 20050401
  2. LITHIUM [Concomitant]
     Dates: start: 20050201
  3. ALBUTEROL [Concomitant]

REACTIONS (4)
  - AGGRESSION [None]
  - AGITATION [None]
  - MOOD SWINGS [None]
  - URINARY INCONTINENCE [None]
